FAERS Safety Report 9267614 (Version 2)
Quarter: 2013Q2

REPORT INFORMATION
  Report Type: Report from Study
  Country: JP (occurrence: JP)
  Receive Date: 20130502
  Receipt Date: 20130502
  Transmission Date: 20140414
  Serious: Yes (Hospitalization)
  Sender: FDA-Public Use
  Company Number: JP-GILEAD-2011-0045489

PATIENT
  Age: 42 Year
  Sex: Male

DRUGS (9)
  1. EMTRICITABINE/TENOFOVIR DISOPROXIL FUMARATE [Suspect]
     Indication: HIV INFECTION
     Dosage: 1 DF, QD
     Route: 048
     Dates: start: 20110225
  2. NORVIR [Suspect]
     Indication: HIV INFECTION
     Dosage: 100 MG, QD
     Route: 048
     Dates: start: 20110225
  3. PREZISTA /05513801/ [Suspect]
     Indication: HIV INFECTION
     Dosage: 800 MG, QD
     Dates: start: 20110225
  4. CLARITHROMYCIN [Concomitant]
     Dosage: UNK
     Dates: start: 20110127
  5. EBUTOL                             /00022301/ [Concomitant]
     Dosage: UNK
     Dates: start: 20110128
  6. FAMOTIDINE [Concomitant]
     Dosage: UNK
     Dates: start: 20110203
  7. MYCOBUTIN [Concomitant]
     Dosage: UNK
     Dates: start: 20110225
  8. CIPROXAN                           /00697202/ [Concomitant]
     Dosage: UNK
     Dates: start: 20110127
  9. VALIXA [Concomitant]
     Dosage: UNK
     Dates: start: 20110311

REACTIONS (3)
  - Immune reconstitution inflammatory syndrome [Not Recovered/Not Resolved]
  - Atypical mycobacterial infection [Not Recovered/Not Resolved]
  - Parotid lipomatosis [Unknown]
